FAERS Safety Report 24564652 (Version 2)
Quarter: 2024Q4

REPORT INFORMATION
  Report Type: Spontaneous
  Country: JP (occurrence: JP)
  Receive Date: 20241030
  Receipt Date: 20241114
  Transmission Date: 20250114
  Serious: Yes (Other)
  Sender: NOVARTIS
  Company Number: JP-002147023-NVSJ2024JP012633

PATIENT

DRUGS (2)
  1. CYCLOSPORINE [Suspect]
     Active Substance: CYCLOSPORINE
     Indication: Foetal exposure during pregnancy
     Dosage: MATERNAL EXPOSURE BEFORE PREGNANCY:UNK
     Route: 050
  2. ECULIZUMAB [Concomitant]
     Active Substance: ECULIZUMAB
     Indication: Foetal exposure during pregnancy
     Dosage: MATERNAL EXPOSURE DURING PREGNANCY:UNK
     Route: 064

REACTIONS (3)
  - Premature baby [Unknown]
  - Bradycardia foetal [Unknown]
  - Foetal exposure during pregnancy [Unknown]
